FAERS Safety Report 21163663 (Version 2)
Quarter: 2022Q3

REPORT INFORMATION
  Report Type: Spontaneous
  Country: US (occurrence: US)
  Receive Date: 20220802
  Receipt Date: 20220811
  Transmission Date: 20221026
  Serious: No
  Sender: FDA-Public Use
  Company Number: US-AMGEN-USASP2022131727

PATIENT
  Age: 39 Year
  Sex: Male

DRUGS (2)
  1. AIMOVIG [Suspect]
     Active Substance: ERENUMAB-AOOE
     Indication: Product used for unknown indication
     Dosage: 140 MILLIGRAM
     Route: 065
     Dates: start: 2022
  2. AIMOVIG [Suspect]
     Active Substance: ERENUMAB-AOOE
     Dosage: 140 MILLIGRAM
     Route: 065
     Dates: start: 2022

REACTIONS (8)
  - Device difficult to use [Unknown]
  - Accidental exposure to product [Unknown]
  - Injection site bruising [Unknown]
  - Injection site erythema [Unknown]
  - Influenza like illness [Unknown]
  - Dysgeusia [Unknown]
  - Drug dose omission by device [Unknown]
  - Device use error [Unknown]

NARRATIVE: CASE EVENT DATE: 20220730
